FAERS Safety Report 9476664 (Version 2)
Quarter: 2013Q3

REPORT INFORMATION
  Report Type: Spontaneous
  Country: CA (occurrence: NO)
  Receive Date: 20130826
  Receipt Date: 20130826
  Transmission Date: 20140515
  Serious: Yes (Death, Congenital Anomaly)
  Sender: FDA-Public Use
  Company Number: GXKR2010NO08880

PATIENT
  Sex: Male

DRUGS (5)
  1. CANDESARTAN CILEXETIL [Suspect]
     Dosage: MATERNAL DOSE: 16 MG/DAY
     Route: 064
  2. PRAMIPEXOLE [Suspect]
     Dosage: MATERNAL DOSE: 0.18 MG, TID
     Route: 064
  3. AMITRIPTYLINE [Suspect]
     Dosage: MATERNAL DOSE: 25 MG/DAY
     Route: 064
  4. ZOLMITRIPTAN [Suspect]
     Route: 064
  5. METOCLOPRAMIDE [Suspect]
     Route: 064

REACTIONS (6)
  - Pulmonary hypoplasia [Fatal]
  - Neonatal respiratory distress syndrome [Fatal]
  - Bone development abnormal [Fatal]
  - Congenital bladder anomaly [Fatal]
  - Renal aplasia [Fatal]
  - Exposure during pregnancy [Unknown]
